FAERS Safety Report 5786497-3 (Version None)
Quarter: 2008Q2

REPORT INFORMATION
  Report Type: 
  Country: None (occurrence: None)
  Receive Date: 20080624
  Receipt Date: 20080529
  Transmission Date: 20081010
  Serious: No
  Sender: FDA-Public Use
  Company Number: US-BOEHRINGER INGELHEIM GMBH, GERMANY-2005-BP-15025BP

PATIENT
  Age: 71 Year
  Sex: Female

DRUGS (1)
  1. ATROVENT HFA [Suspect]
     Indication: CHRONIC OBSTRUCTIVE PULMONARY DISEASE
     Route: 055

REACTIONS (5)
  - BRONCHITIS [None]
  - DRY MOUTH [None]
  - INFECTION [None]
  - URINARY RETENTION [None]
  - VERTIGO [None]
